FAERS Safety Report 15360312 (Version 3)
Quarter: 2020Q4

REPORT INFORMATION
  Report Type: Spontaneous
  Country: US (occurrence: US)
  Receive Date: 20180907
  Receipt Date: 20201008
  Transmission Date: 20210113
  Serious: Yes (Other)
  Sender: FDA-Public Use
  Company Number: US-PFIZER INC-2015308824

PATIENT
  Age: 72 Year
  Sex: Female

DRUGS (23)
  1. NEXIUM [Concomitant]
     Active Substance: ESOMEPRAZOLE MAGNESIUM
     Dosage: 40 MG, 2X/DAY
     Route: 048
  2. ATENOLOL. [Concomitant]
     Active Substance: ATENOLOL
     Dosage: 25 MG, 1X/DAY
     Route: 048
  3. CANDESARTAN+HYDROCHLOROTHIAZIDE [Concomitant]
     Active Substance: CANDESARTAN CILEXETIL\HYDROCHLOROTHIAZIDE
     Dosage: UNK, 1X/DAY
     Route: 048
  4. ASPIRIN. [Concomitant]
     Active Substance: ASPIRIN
     Dosage: 81 MG, 1X/DAY
     Route: 048
  5. LYRICA [Suspect]
     Active Substance: PREGABALIN
     Indication: SPINAL PAIN
     Dosage: 25 MG, 3X/DAY
     Route: 048
     Dates: start: 20170123
  6. PLAVIX [Concomitant]
     Active Substance: CLOPIDOGREL BISULFATE
     Dosage: 75 MG, 1X/DAY
     Route: 048
  7. VALIUM [Concomitant]
     Active Substance: DIAZEPAM
     Dosage: 1 MG, AS NEEDED [1/2 TABLET]
  8. VALIUM [Concomitant]
     Active Substance: DIAZEPAM
     Dosage: 1 MG (2MG TABLET,  1/2 TABLET) PRN
  9. LYRICA [Suspect]
     Active Substance: PREGABALIN
     Indication: PAIN
     Dosage: 25 MG, 3X/DAY
     Route: 048
     Dates: start: 20180118
  10. PRAVASTATIN. [Concomitant]
     Active Substance: PRAVASTATIN
     Dosage: 40 MG, UNK (1-2 TIMES DAY)
  11. CANDESARTAN+HYDROCHLOROTHIAZIDE [Concomitant]
     Active Substance: CANDESARTAN CILEXETIL\HYDROCHLOROTHIAZIDE
     Dosage: UNK UNK, DAILY [CANDESARTAN CILEXETIL 32MG/HYDROCHLOROTHIAZIDE 25MG]
     Route: 048
  12. VITAMIN D3 [Concomitant]
     Active Substance: CHOLECALCIFEROL
     Dosage: 2000 IU, 1X/DAY
  13. AMITRIPTYLINE [Concomitant]
     Active Substance: AMITRIPTYLINE
     Indication: ADJUSTMENT DISORDER WITH DEPRESSED MOOD
     Dosage: 10 MG, 1X/DAY
     Route: 048
  14. CALCIUM PLUS VITAMIN D3 [Concomitant]
     Dosage: 500 MG, 2X/DAY
  15. NEXIUM [Concomitant]
     Active Substance: ESOMEPRAZOLE MAGNESIUM
     Dosage: UNK UNK, 1X/DAY
     Route: 048
  16. PRAVASTATIN. [Concomitant]
     Active Substance: PRAVASTATIN
     Dosage: 40 MG, 1X/DAY
     Route: 048
  17. NEXIUM [Concomitant]
     Active Substance: ESOMEPRAZOLE MAGNESIUM
     Dosage: 20 MG, 2X/DAY
  18. BACLOFEN. [Concomitant]
     Active Substance: BACLOFEN
     Dosage: 5 MG, AS NEEDED [1/2 TABLET]
  19. BACLOFEN. [Concomitant]
     Active Substance: BACLOFEN
     Dosage: 10 MG TABLET: 1/2 TABLET PRN
  20. VITAMIN D3 [Concomitant]
     Active Substance: CHOLECALCIFEROL
     Dosage: 1000 IU, 1X/DAY
     Route: 048
  21. VALIUM [Concomitant]
     Active Substance: DIAZEPAM
     Indication: ANXIETY
     Dosage: UNK UNK, AS NEEDED [TAKE 0.5-1 TABLETS (1-2MG) BY MOUTH 3 (THREE) TIMES A DAY AS NEEDED]
     Route: 048
  22. LYRICA [Suspect]
     Active Substance: PREGABALIN
     Indication: BACK PAIN
     Dosage: 25 MG, 2X/DAY
     Route: 048
     Dates: start: 20150824
  23. LEVOTHYROXINE. [Concomitant]
     Active Substance: LEVOTHYROXINE
     Dosage: ^88 MG^, 1X/DAY
     Route: 048

REACTIONS (3)
  - Cataract [Unknown]
  - Illness [Unknown]
  - Hypoacusis [Unknown]
